FAERS Safety Report 24651108 (Version 3)
Quarter: 2025Q2

REPORT INFORMATION
  Report Type: Report from Study
  Country: US (occurrence: US)
  Receive Date: 20241122
  Receipt Date: 20250508
  Transmission Date: 20250716
  Serious: Yes (Other)
  Sender: AMGEN
  Company Number: US-AMGEN-USASP2024227791

PATIENT
  Age: 64 Year
  Sex: Female
  Weight: 71.202 kg

DRUGS (3)
  1. EVENITY [Suspect]
     Active Substance: ROMOSOZUMAB-AQQG
     Indication: Osteoporosis postmenopausal
     Dosage: 210 MILLIGRAM, QMO
     Route: 058
     Dates: start: 20241030
  2. PREDNISONE [Concomitant]
     Active Substance: PREDNISONE
     Dates: start: 20250207
  3. ORENCIA [Concomitant]
     Active Substance: ABATACEPT

REACTIONS (12)
  - Rheumatoid arthritis [Unknown]
  - Injection site bruising [Recovered/Resolved]
  - Injection site erythema [Unknown]
  - Injection site mass [Unknown]
  - Sensitive skin [Unknown]
  - Oral herpes [Unknown]
  - Cough [Unknown]
  - Anaemia [Unknown]
  - Abdominal pain [Unknown]
  - Rash [Unknown]
  - Hypocalcaemia [Unknown]
  - Pruritus [Unknown]

NARRATIVE: CASE EVENT DATE: 20240101
